FAERS Safety Report 16273370 (Version 3)
Quarter: 2019Q3

REPORT INFORMATION
  Report Type: Report from Study
  Country: None (occurrence: US)
  Receive Date: 20190506
  Receipt Date: 20190723
  Transmission Date: 20191004
  Serious: Yes (Other)
  Sender: FDA-Public Use
  Company Number: US-ABBVIE-19K-163-2718257-00

PATIENT
  Sex: Female

DRUGS (1)
  1. HUMIRA [Suspect]
     Active Substance: ADALIMUMAB
     Indication: RHEUMATOID ARTHRITIS
     Route: 058

REACTIONS (10)
  - Balance disorder [Unknown]
  - Umbilical hernia [Unknown]
  - Meteoropathy [Unknown]
  - Fall [Unknown]
  - Cataract [Recovering/Resolving]
  - Abdominal hernia [Recovering/Resolving]
  - Musculoskeletal pain [Unknown]
  - Back pain [Unknown]
  - Insomnia [Unknown]
  - Osteoarthritis [Unknown]
